FAERS Safety Report 19661515 (Version 2)
Quarter: 2021Q3

REPORT INFORMATION
  Report Type: Spontaneous
  Country: US (occurrence: US)
  Receive Date: 20210805
  Receipt Date: 20210901
  Transmission Date: 20211014
  Serious: No
  Sender: FDA-Public Use
  Company Number: US-ASTRAZENECA-2021A608717

PATIENT
  Age: 26638 Day
  Sex: Male
  Weight: 97.5 kg

DRUGS (7)
  1. METFORMIN [Concomitant]
     Active Substance: METFORMIN HYDROCHLORIDE
     Indication: DIABETES MELLITUS
  2. VALSARTAN AND HYDROCHLOROTHIAZIDE [Concomitant]
     Active Substance: HYDROCHLOROTHIAZIDE\VALSARTAN
     Indication: BLOOD PRESSURE ABNORMAL
     Dosage: 80?12.5
  3. BYDUREON BCISE [Suspect]
     Active Substance: EXENATIDE
     Indication: TYPE 2 DIABETES MELLITUS
     Route: 058
     Dates: start: 202103
  4. ATORVASTATIN [Concomitant]
     Active Substance: ATORVASTATIN
     Indication: BLOOD CHOLESTEROL ABNORMAL
  5. PAIN MEDICATION [Concomitant]
     Active Substance: UNSPECIFIED INGREDIENT
     Indication: ARTHRALGIA
     Dosage: AS REQUIRED
  6. BYDUREON [Suspect]
     Active Substance: EXENATIDE
     Indication: DIABETES MELLITUS
     Route: 058
     Dates: end: 202103
  7. VITAMIN D [Concomitant]
     Active Substance: VITAMIN D NOS
     Indication: COVID-19 PROPHYLAXIS

REACTIONS (4)
  - Fall [Recovering/Resolving]
  - Incorrect dose administered by device [Unknown]
  - Device leakage [Unknown]
  - Limb injury [Recovering/Resolving]

NARRATIVE: CASE EVENT DATE: 20170103
